FAERS Safety Report 9891048 (Version 1)
Quarter: 2014Q1

REPORT INFORMATION
  Report Type: Spontaneous
  Country: ES (occurrence: None)
  Receive Date: 20140210
  Receipt Date: 20140210
  Transmission Date: 20141002
  Serious: Yes (Other)
  Sender: FDA-Public Use
  Company Number: ES-ZYDUS-002495

PATIENT
  Age: 28 Year
  Sex: Male

DRUGS (3)
  1. TOPIRAMATE (TOPIRAMATE) [Suspect]
  2. FLUOXETINE (FLUOXETINE) [Suspect]
     Dosage: 60 MG -1.0DAYS
  3. ARIPIPRAZOLE (ARIPIPRAZOLE) [Suspect]

REACTIONS (4)
  - Ventricular arrhythmia [None]
  - Atrial fibrillation [None]
  - Bundle branch block right [None]
  - Supraventricular extrasystoles [None]
